FAERS Safety Report 10379160 (Version 2)
Quarter: 2015Q1

REPORT INFORMATION
  Report Type: Report from Study
  Country: JP (occurrence: JP)
  Receive Date: 20140812
  Receipt Date: 20150319
  Transmission Date: 20150720
  Serious: Yes (Death, Hospitalization, Other)
  Sender: FDA-Public Use
  Company Number: JP-GLAXOSMITHKLINE-B1013144A

PATIENT
  Age: 64 Year
  Sex: Female
  Weight: 43 kg

DRUGS (73)
  1. FORIT [Suspect]
     Active Substance: OXYPERTINE
     Dosage: 20 MG, BID
     Route: 048
     Dates: start: 20130811, end: 20130812
  2. BFLUID [Suspect]
     Active Substance: AMINO ACIDS\DEXTROSE\ELECTROLYTES NOS\VITAMINS
     Dosage: 1000 ML, QD
     Route: 041
     Dates: start: 20130821, end: 20130826
  3. BFLUID [Suspect]
     Active Substance: AMINO ACIDS\DEXTROSE\ELECTROLYTES NOS\VITAMINS
     Dosage: 500 ML, QD
     Route: 041
     Dates: start: 20130827, end: 20130828
  4. ASPARA POTASSIUM [Suspect]
     Active Substance: POTASSIUM ASPARTATE
     Dosage: 10 MEQ, QD
     Route: 041
     Dates: start: 20130628, end: 20130628
  5. HUMULIN R [Suspect]
     Active Substance: INSULIN HUMAN
     Indication: DIABETES MELLITUS
     Route: 058
     Dates: start: 20130626, end: 20130826
  6. FULCALIQ [Suspect]
     Active Substance: AMINO ACIDS\CARBOHYDRATES\ELECTROLYTES NOS\VITAMINS
     Indication: DEHYDRATION
     Dosage: 1806 ML, QD
     Route: 041
     Dates: start: 20130627, end: 20130629
  7. INOVAN [Suspect]
     Active Substance: DOPAMINE HYDROCHLORIDE
     Indication: BLOOD PRESSURE DECREASED
     Route: 042
     Dates: start: 20130627, end: 20130901
  8. NOVO HEPARIN [Suspect]
     Active Substance: HEPARIN SODIUM
     Indication: PULMONARY EMBOLISM
     Dosage: 10 KIU, QD
     Route: 051
     Dates: start: 20130704, end: 20130826
  9. MINOCYCLINE HYDROCHLORIDE. [Suspect]
     Active Substance: MINOCYCLINE HYDROCHLORIDE
     Dosage: 100 MG, BID
     Route: 051
     Dates: start: 20130827, end: 20130901
  10. ATARAXP [Suspect]
     Active Substance: HYDROXYZINE HYDROCHLORIDE
     Indication: SEDATIVE THERAPY
     Dosage: 50 MG, QD
     Route: 051
     Dates: start: 20130722, end: 20130722
  11. CRAVIT [Suspect]
     Active Substance: LEVOFLOXACIN
     Indication: URINARY TRACT INFECTION
     Dosage: 500 MG, QD
     Route: 048
     Dates: start: 20130803, end: 20130806
  12. ITRIZOLE [Suspect]
     Active Substance: ITRACONAZOLE
     Dosage: 200 MG, QD
     Route: 041
     Dates: start: 20130627, end: 20130701
  13. PROPOFOL. [Suspect]
     Active Substance: PROPOFOL
     Indication: SEDATIVE THERAPY
     Route: 051
     Dates: start: 20130627, end: 20130714
  14. SOLDEM 3A [Suspect]
     Active Substance: CARBOHYDRATES\POTASSIUM CHLORIDE\SODIUM CHLORIDE\SODIUM LACTATE
     Indication: DEHYDRATION
     Dosage: 500 ML, TID
     Route: 041
     Dates: start: 20130627, end: 20130627
  15. MINOCYCLINE HYDROCHLORIDE. [Suspect]
     Active Substance: MINOCYCLINE HYDROCHLORIDE
     Indication: PNEUMONIA
     Dosage: 100 MG, BID
     Route: 051
     Dates: start: 20130715, end: 20130722
  16. SERENACE [Suspect]
     Active Substance: HALOPERIDOL
     Indication: SEDATIVE THERAPY
     Dosage: 5 MG, QD
     Route: 051
     Dates: start: 20130803, end: 20130803
  17. KARMIPACK [Suspect]
     Active Substance: SODIUM CHLORIDE
     Dosage: 250 ML, QD
     Route: 051
     Dates: start: 20130831, end: 20130901
  18. SODIUM CHLORIDE. [Suspect]
     Active Substance: SODIUM CHLORIDE
     Indication: HYPONATRAEMIA
     Dosage: 40 ML, QD
     Route: 051
     Dates: start: 20130816, end: 20130828
  19. METGLUCO [Suspect]
     Active Substance: METFORMIN HYDROCHLORIDE
     Indication: DIABETES MELLITUS
     Dosage: 250 MG, TID
     Route: 048
     Dates: start: 20130729, end: 20130827
  20. ROHYPNOL [Suspect]
     Active Substance: FLUNITRAZEPAM
     Indication: INSOMNIA
     Dosage: 2 MG, QD
     Route: 048
     Dates: start: 20130731, end: 20130807
  21. FLOMOX [Suspect]
     Active Substance: CEFCAPENE PIVOXIL HYDROCHLORIDE HYDRATE
     Indication: URINARY TRACT INFECTION
     Dosage: 100 MG, TID
     Route: 048
     Dates: start: 20130802, end: 20130803
  22. CRAVIT [Suspect]
     Active Substance: LEVOFLOXACIN
     Indication: SEPSIS
     Route: 048
     Dates: start: 20130823, end: 20130826
  23. DORMICUM [Suspect]
     Active Substance: MIDAZOLAM\MIDAZOLAM HYDROCHLORIDE
     Indication: SEDATIVE THERAPY
     Route: 051
     Dates: start: 20130627, end: 20130627
  24. POTASSIUM CHLORIDE. [Suspect]
     Active Substance: POTASSIUM CHLORIDE
     Dosage: 20 MEQ, BID
     Route: 041
     Dates: start: 20130629, end: 20130712
  25. FULCALIQ [Suspect]
     Active Substance: AMINO ACIDS\CARBOHYDRATES\ELECTROLYTES NOS\VITAMINS
     Indication: FEEDING DISORDER
     Dosage: 2006 ML, QD
     Route: 041
     Dates: start: 20130630, end: 20130717
  26. FINIBAX [Suspect]
     Active Substance: DORIPENEM MONOHYDRATE
     Indication: PNEUMONIA
     Dosage: 1 G, TID
     Route: 041
     Dates: start: 20130705, end: 20130714
  27. FINIBAX [Suspect]
     Active Substance: DORIPENEM MONOHYDRATE
     Dosage: 1 G, TID
     Route: 041
     Dates: start: 20130826, end: 20130901
  28. GASDOCK [Suspect]
     Active Substance: FAMOTIDINE
     Indication: PROPHYLAXIS AGAINST GASTROINTESTINAL ULCER
     Dosage: 20 MG, QD
     Route: 051
     Dates: start: 20130827, end: 20130901
  29. METHYLPREDNISOLONE. [Suspect]
     Active Substance: METHYLPREDNISOLONE
     Indication: PNEUMONIA
     Dosage: 1000 MG, QD
     Route: 042
     Dates: start: 20130627, end: 20130629
  30. PREDONINE [Suspect]
     Active Substance: PREDNISOLONE\PREDNISOLONE ACETATE\PREDNISOLONE SODIUM SUCCINATE
     Dosage: 20 MG, BID
     Route: 048
     Dates: start: 20130705, end: 20130709
  31. TAKEPRON [Suspect]
     Active Substance: LANSOPRAZOLE
     Indication: PROPHYLAXIS AGAINST GASTROINTESTINAL ULCER
     Dosage: 30 MG, QD
     Route: 048
     Dates: start: 20130701, end: 20130827
  32. SODIUM CHLORIDE. [Suspect]
     Active Substance: SODIUM CHLORIDE
     Indication: HYPONATRAEMIA
     Dosage: 2 G, TID
     Route: 048
     Dates: start: 20130817, end: 20130827
  33. BFLUID [Suspect]
     Active Substance: AMINO ACIDS\DEXTROSE\ELECTROLYTES NOS\VITAMINS
     Indication: DEHYDRATION
     Dosage: 500 ML, QD
     Route: 041
     Dates: start: 20130626, end: 20130626
  34. ASPARA POTASSIUM [Suspect]
     Active Substance: POTASSIUM ASPARTATE
     Indication: HYPOKALAEMIA
     Dosage: 10 MEQ, QD
     Route: 041
     Dates: start: 20130626, end: 20130626
  35. SOLDEM 1 [Suspect]
     Active Substance: DEXTROSE\SODIUM CHLORIDE\SODIUM LACTATE
     Indication: DEHYDRATION
     Dosage: 1200 ML, QD
     Route: 041
     Dates: start: 20130719, end: 20130720
  36. LACTEC [Suspect]
     Active Substance: CALCIUM CHLORIDE ANHYDROUS\POTASSIUM CHLORIDE\SODIUM CHLORIDE\SODIUM LACTATE
     Indication: DEHYDRATION
     Dosage: 500 ML, QD
     Route: 041
     Dates: start: 20130827, end: 20130828
  37. ATOVAQUONE. [Suspect]
     Active Substance: ATOVAQUONE
     Indication: ANTIFUNGAL PROPHYLAXIS
     Dosage: 1500 MG, QD
     Route: 048
     Dates: start: 20130717, end: 20130820
  38. NEXIUM [Suspect]
     Active Substance: ESOMEPRAZOLE MAGNESIUM
     Indication: PROPHYLAXIS AGAINST GASTROINTESTINAL ULCER
     Dosage: 20 MG, QD
     Route: 048
     Dates: start: 20130408, end: 20130630
  39. ANHIBA [Suspect]
     Active Substance: ACETAMINOPHEN
     Indication: PNEUMONIA
     Route: 054
     Dates: start: 20130624, end: 20130825
  40. GRAMALIL [Suspect]
     Active Substance: TIAPRIDE HYDROCHLORIDE
     Indication: RESTLESSNESS
     Dosage: 50 MG, TID
     Route: 048
     Dates: start: 20130804, end: 20130827
  41. LAC-B [Suspect]
     Active Substance: BIFIDOBACTERIUM SPP.
     Indication: DIARRHOEA
     Dosage: 1 G, TID
     Route: 048
     Dates: start: 20130806, end: 20130827
  42. CALONAL [Suspect]
     Active Substance: ACETAMINOPHEN
     Indication: PNEUMONIA
     Route: 048
     Dates: start: 20130818, end: 20130823
  43. SULBACILLIN [Suspect]
     Active Substance: AMPICILLIN SODIUM\SULBACTAM SODIUM
     Indication: INFECTION
     Dosage: 1.5 MG, TID
     Route: 042
     Dates: start: 20130624, end: 20130705
  44. ELEMENMIC [Suspect]
     Active Substance: CUPRIC SULFATE\FERRIC CHLORIDE\MANGANESE CHLORIDE\POTASSIUM IODIDE\ZINC SULFATE
     Indication: TRACE ELEMENT DEFICIENCY
     Dosage: 1 DF, QD
     Route: 041
     Dates: start: 20130719, end: 20130720
  45. VITAJECT [Suspect]
     Active Substance: CYANOCOBALAMIN\PYRIDOXAMINE HYDROCHLORIDE\THIAMINE HYDROCHLORIDE
     Indication: HYPOVITAMINOSIS
     Dosage: 1 DF, QD
     Route: 041
     Dates: start: 20130719, end: 20130720
  46. NOREPINEPHRINE [Suspect]
     Active Substance: NOREPINEPHRINE\NOREPINEPHRINE BITARTRATE
     Indication: BLOOD PRESSURE DECREASED
     Route: 051
     Dates: start: 20130826, end: 20130901
  47. ATARAX-P [Suspect]
     Active Substance: HYDROXYZINE HYDROCHLORIDE
     Indication: INSOMNIA
     Dosage: 25 MG, TID
     Route: 048
     Dates: start: 20130731, end: 20130827
  48. FORIT [Suspect]
     Active Substance: OXYPERTINE
     Indication: RESTLESSNESS
     Dosage: 20 MG, QD
     Route: 048
     Dates: start: 20130810, end: 20130810
  49. MINOMYCIN [Suspect]
     Active Substance: MINOCYCLINE HYDROCHLORIDE
     Indication: SEPSIS
     Dosage: 100 MG, BID
     Route: 048
     Dates: start: 20130826, end: 20130827
  50. ATARAXP [Suspect]
     Active Substance: HYDROXYZINE HYDROCHLORIDE
     Dosage: 50 MG, QD
     Route: 051
     Dates: start: 20130821, end: 20130822
  51. FULCALIQ [Suspect]
     Active Substance: AMINO ACIDS\CARBOHYDRATES\ELECTROLYTES NOS\VITAMINS
     Indication: DEHYDRATION
     Dosage: 1103 ML, QD
     Route: 041
     Dates: start: 20130816, end: 20130820
  52. KARMIPACK [Suspect]
     Active Substance: SODIUM CHLORIDE
     Indication: DEHYDRATION
     Dosage: 200 ML, QD
     Route: 051
     Dates: start: 20130816, end: 20130820
  53. PREDONINE [Suspect]
     Active Substance: PREDNISOLONE\PREDNISOLONE ACETATE\PREDNISOLONE SODIUM SUCCINATE
     Indication: PNEUMONIA
     Dosage: 60 MG, QD
     Route: 042
     Dates: start: 20130630, end: 20130704
  54. METHYLPREDNISOLONE. [Suspect]
     Active Substance: METHYLPREDNISOLONE
     Dosage: 500 MG, QD
     Route: 042
     Dates: start: 20130827, end: 20130827
  55. ATOVAQUONE. [Suspect]
     Active Substance: ATOVAQUONE
     Indication: PNEUMOCYSTIS JIROVECII PNEUMONIA
     Dosage: 750 MG, BID
     Route: 048
     Dates: start: 20130626, end: 20130716
  56. PREDONINE [Suspect]
     Active Substance: PREDNISOLONE\PREDNISOLONE ACETATE\PREDNISOLONE SODIUM SUCCINATE
     Indication: PNEUMONIA
     Dosage: 15 MG, BID
     Route: 048
     Dates: start: 20130513, end: 20130629
  57. PREDONINE [Suspect]
     Active Substance: PREDNISOLONE\PREDNISOLONE ACETATE\PREDNISOLONE SODIUM SUCCINATE
     Dosage: 15 MG, BID
     Route: 048
     Dates: start: 20130710, end: 20130826
  58. MORPHINE HYDROCHLORIDE HYDRATE [Suspect]
     Active Substance: MORPHINE HYDROCHLORIDE
     Indication: SEDATIVE THERAPY
     Dosage: UNK, PRN
     Route: 051
     Dates: start: 20130627, end: 20130708
  59. GASMOTIN [Suspect]
     Active Substance: MOSAPRIDE CITRATE
     Indication: CONSTIPATION
     Dosage: 5 MG, TID
     Route: 048
     Dates: start: 20130709, end: 20130827
  60. LUNESTA [Suspect]
     Active Substance: ESZOPICLONE
     Indication: INSOMNIA
     Dosage: 1 MG, QD
     Route: 048
     Dates: start: 20130808, end: 20130827
  61. DORMICUM [Suspect]
     Active Substance: MIDAZOLAM\MIDAZOLAM HYDROCHLORIDE
     Route: 051
     Dates: start: 20130704, end: 20130830
  62. POTASSIUM CHLORIDE. [Suspect]
     Active Substance: POTASSIUM CHLORIDE
     Indication: HYPOKALAEMIA
     Dosage: 20 MEQ, BID
     Route: 041
     Dates: start: 20130627, end: 20130627
  63. POTASSIUM CHLORIDE. [Suspect]
     Active Substance: POTASSIUM CHLORIDE
     Dosage: 20 MEQ, BID
     Route: 041
     Dates: start: 20130720, end: 20130720
  64. HORIZON [Suspect]
     Active Substance: DIAZEPAM
     Indication: SEDATIVE THERAPY
     Dosage: 10 MG, QD
     Route: 051
     Dates: start: 20130709, end: 20130709
  65. HICALIQ RF [Suspect]
     Active Substance: CALCIUM GLUCONATE\DEXTROSE\MAGNESIUM SULFATE\POTASSIUM ACETATE\POTASSIUM PHOSPHATE, DIBASIC\ZINC SULFATE
     Indication: DEHYDRATION
     Dosage: 750 ML, QD
     Route: 041
     Dates: start: 20130719, end: 20130720
  66. SOLDEM 1 [Suspect]
     Active Substance: DEXTROSE\SODIUM CHLORIDE\SODIUM LACTATE
     Dosage: 1200 ML, QD
     Route: 041
     Dates: start: 20130830, end: 20130830
  67. SERENACE [Suspect]
     Active Substance: HALOPERIDOL
     Dosage: 5 MG, QD
     Route: 051
     Dates: start: 20130821, end: 20130822
  68. PREDONINE [Suspect]
     Active Substance: PREDNISOLONE\PREDNISOLONE ACETATE\PREDNISOLONE SODIUM SUCCINATE
     Dosage: 30 MG, QD
     Route: 042
     Dates: start: 20130828
  69. ATOVAQUONE. [Suspect]
     Active Substance: ATOVAQUONE
     Indication: PNEUMOCYSTIS JIROVECII PNEUMONIA
     Dosage: 750 MG, BID
     Route: 048
     Dates: start: 20130821, end: 20130826
  70. VOLTAREN [Suspect]
     Active Substance: DICLOFENAC SODIUM
     Indication: PNEUMONIA
     Route: 054
     Dates: start: 20130627, end: 20130826
  71. FORIT [Suspect]
     Active Substance: OXYPERTINE
     Dosage: 20 MG, TID
     Route: 048
     Dates: start: 20130813, end: 20130827
  72. ITRIZOLE [Suspect]
     Active Substance: ITRACONAZOLE
     Indication: PULMONARY MYCOSIS
     Dosage: 200 MG, BID
     Route: 041
     Dates: start: 20130625, end: 20130626
  73. FULCALIQ [Suspect]
     Active Substance: AMINO ACIDS\CARBOHYDRATES\ELECTROLYTES NOS\VITAMINS
     Dosage: 2006 ML, QD
     Route: 041
     Dates: start: 20130721, end: 20130815

REACTIONS (20)
  - Diarrhoea [Recovering/Resolving]
  - Liver disorder [Recovered/Resolved]
  - Dehydration [Not Recovered/Not Resolved]
  - Malnutrition [None]
  - Anaemia macrocytic [Not Recovered/Not Resolved]
  - Diabetes mellitus [Not Recovered/Not Resolved]
  - Vomiting [Recovered/Resolved]
  - Hyponatraemia [Not Recovered/Not Resolved]
  - Hypovitaminosis [Not Recovered/Not Resolved]
  - Insomnia [Not Recovered/Not Resolved]
  - Pneumonia [Recovered/Resolved]
  - Urinary tract infection [Recovered/Resolved]
  - Constipation [Not Recovered/Not Resolved]
  - Pulmonary mycosis [None]
  - Pulmonary embolism [Not Recovered/Not Resolved]
  - Restlessness [Not Recovered/Not Resolved]
  - Hypokalaemia [Recovered/Resolved]
  - Trace element deficiency [Not Recovered/Not Resolved]
  - Blood pressure decreased [Not Recovered/Not Resolved]
  - Sepsis [Fatal]

NARRATIVE: CASE EVENT DATE: 20130626
